FAERS Safety Report 7892536-6 (Version None)
Quarter: 2011Q4

REPORT INFORMATION
  Report Type: 
  Country: None (occurrence: None)
  Receive Date: 20111025
  Receipt Date: 20111017
  Transmission Date: 20120403
  Serious: Yes (Hospitalization)
  Sender: FDA-Public Use
  Company Number: 2011030104

PATIENT
  Age: 77 Year
  Sex: Male

DRUGS (4)
  1. SANDOGLOBULINE (IMMUNE GLOBULIN INTRAVENOUS (HUMAN) ), LOT# 4303900050 [Suspect]
     Indication: SECONDARY IMMUNODEFICIENCY
     Dosage: 30 G QD, 30 G QD
     Dates: start: 20101130, end: 20101130
  2. SANDOGLOBULINE (IMMUNE GLOBULIN INTRAVENOUS (HUMAN) ), LOT# 4303900050 [Suspect]
     Indication: CHRONIC LEUKAEMIA
     Dosage: 30 G QD, 30 G QD
     Dates: start: 20101130, end: 20101130
  3. SANDOGLOBULINE (IMMUNE GLOBULIN INTRAVENOUS (HUMAN) ), LOT# 4303900050 [Suspect]
     Indication: SECONDARY IMMUNODEFICIENCY
     Dosage: 30 G QD, 30 G QD
     Dates: start: 20101228, end: 20101228
  4. SANDOGLOBULINE (IMMUNE GLOBULIN INTRAVENOUS (HUMAN) ), LOT# 4303900050 [Suspect]
     Indication: CHRONIC LEUKAEMIA
     Dosage: 30 G QD, 30 G QD
     Dates: start: 20101228, end: 20101228

REACTIONS (9)
  - ECZEMA [None]
  - PRURITUS GENERALISED [None]
  - SKIN EXFOLIATION [None]
  - RASH ERYTHEMATOUS [None]
  - PARANEOPLASTIC SYNDROME [None]
  - TOXIC SKIN ERUPTION [None]
  - DRUG INEFFECTIVE [None]
  - PSORIASIS [None]
  - SKIN LESION [None]
